FAERS Safety Report 14454141 (Version 2)
Quarter: 2020Q2

REPORT INFORMATION
  Report Type: Spontaneous
  Country: US (occurrence: US)
  Receive Date: 20180129
  Receipt Date: 20200408
  Transmission Date: 20200713
  Serious: Yes (Death, Hospitalization, Disabling, Other)
  Sender: FDA-Public Use
  Company Number: US-009507513-1801USA013471

PATIENT
  Sex: Female

DRUGS (1)
  1. JANUVIA [Suspect]
     Active Substance: SITAGLIPTIN PHOSPHATE
     Indication: TYPE 2 DIABETES MELLITUS
     Dosage: 100 MILLIGRAM, QD
     Route: 048
     Dates: start: 2014, end: 20150724

REACTIONS (24)
  - Adenocarcinoma [Unknown]
  - Obesity [Unknown]
  - Duodenal obstruction [Unknown]
  - Pleural effusion [Unknown]
  - Joint dislocation [Unknown]
  - Pancreatic carcinoma metastatic [Fatal]
  - Lid sulcus deepened [Unknown]
  - Malnutrition [Unknown]
  - Cancer pain [Unknown]
  - Diabetic neuropathy [Unknown]
  - Weight decreased [Unknown]
  - General physical health deterioration [Unknown]
  - Decreased appetite [Unknown]
  - Vomiting [Unknown]
  - Diverticulum [Unknown]
  - Drug hypersensitivity [Unknown]
  - Abdominal pain [Unknown]
  - Dehydration [Unknown]
  - Pulmonary mass [Unknown]
  - Lethargy [Unknown]
  - Nausea [Unknown]
  - Atelectasis [Unknown]
  - Hepatic mass [Unknown]
  - Muscle atrophy [Unknown]

NARRATIVE: CASE EVENT DATE: 20160201
